FAERS Safety Report 12146134 (Version 1)
Quarter: 2016Q1

REPORT INFORMATION
  Report Type: Spontaneous
  Country: GB (occurrence: GB)
  Receive Date: 20160304
  Receipt Date: 20160304
  Transmission Date: 20160526
  Serious: Yes (Other)
  Sender: FDA-Public Use
  Company Number: GB-TEVA-638947ACC

PATIENT
  Age: 76 Year
  Sex: Female
  Weight: 67 kg

DRUGS (9)
  1. CHLORPHENAMINE [Concomitant]
     Active Substance: CHLORPHENIRAMINE MALEATE
     Dosage: EVERY 4-6 HRS
     Dates: start: 20160216
  2. AMOXICILLIN. [Concomitant]
     Active Substance: AMOXICILLIN
     Dosage: 3 DOSAGE FORMS DAILY;
     Dates: start: 20160216
  3. ESTRADIOL. [Concomitant]
     Active Substance: ESTRADIOL
     Dosage: AS DIRECTED
     Dates: start: 20150529
  4. LANSOPRAZOLE. [Concomitant]
     Active Substance: LANSOPRAZOLE
     Dosage: 1 DOSAGE FORMS DAILY;
     Dates: start: 20151112
  5. PREDNISOLONE. [Concomitant]
     Active Substance: PREDNISOLONE
     Dosage: 1 DOSAGE FORMS DAILY;
     Dates: start: 20160216
  6. DOMPERIDONE [Concomitant]
     Active Substance: DOMPERIDONE
     Dosage: AS DIRECTED
     Dates: start: 20160216
  7. TRIMETHOPRIM. [Suspect]
     Active Substance: TRIMETHOPRIM
     Dates: start: 20160216
  8. SALBUTAMOL [Concomitant]
     Active Substance: ALBUTEROL
     Route: 055
     Dates: start: 20160216
  9. MELOXICAM. [Concomitant]
     Active Substance: MELOXICAM
     Dosage: 1 DOSAGE FORMS DAILY;
     Dates: start: 20150529

REACTIONS (3)
  - Hypersensitivity [Recovering/Resolving]
  - Wheezing [Recovering/Resolving]
  - Urticaria [Recovering/Resolving]

NARRATIVE: CASE EVENT DATE: 20160216
